FAERS Safety Report 11928152 (Version 1)
Quarter: 2016Q1

REPORT INFORMATION
  Report Type: Spontaneous
  Country: US (occurrence: US)
  Receive Date: 20160119
  Receipt Date: 20160119
  Transmission Date: 20160526
  Serious: Yes (Other)
  Sender: FDA-Public Use
  Company Number: US-ASTRAZENECA-2016SE03541

PATIENT
  Sex: Female

DRUGS (1)
  1. ANASTROZOLE. [Suspect]
     Active Substance: ANASTROZOLE
     Indication: BREAST CANCER FEMALE
     Route: 048
     Dates: start: 20100916

REACTIONS (8)
  - Angina pectoris [Unknown]
  - Pain in extremity [Unknown]
  - Mobility decreased [Unknown]
  - Cardiomegaly [Unknown]
  - Limb discomfort [Unknown]
  - Weight decreased [Unknown]
  - Vascular occlusion [Unknown]
  - Anxiety [Unknown]
